FAERS Safety Report 4347659-5 (Version None)
Quarter: 2004Q2

REPORT INFORMATION
  Report Type: 
  Country: None (occurrence: None)
  Receive Date: 20040422
  Receipt Date: 20040407
  Transmission Date: 20050107
  Serious: Yes (Other)
  Sender: FDA-Public Use
  Company Number: US_0404102162

PATIENT
  Age: 19 Year
  Sex: Male

DRUGS (1)
  1. INSULIN [Suspect]
     Dosage: UNK
     Route: 065

REACTIONS (1)
  - DIABETIC COMA [None]
